FAERS Safety Report 6057540-1 (Version None)
Quarter: 2009Q1

REPORT INFORMATION
  Report Type: 
  Country: None (occurrence: None)
  Receive Date: 20090129
  Receipt Date: 20090115
  Transmission Date: 20090719
  Serious: Yes (Other)
  Sender: FDA-Public Use
  Company Number: GB-BRISTOL-MYERS SQUIBB COMPANY-14486757

PATIENT
  Age: 78 Year
  Sex: Male

DRUGS (4)
  1. LISINOPRIL [Suspect]
  2. METFORMIN HCL [Suspect]
  3. SIMVASTATIN [Concomitant]
  4. GLICLAZIDE [Concomitant]

REACTIONS (5)
  - DIARRHOEA [None]
  - DYSPNOEA EXERTIONAL [None]
  - LACTIC ACIDOSIS [None]
  - RENAL FAILURE ACUTE [None]
  - TREMOR [None]
